FAERS Safety Report 6801052-1 (Version None)
Quarter: 2010Q2

REPORT INFORMATION
  Report Type: 
  Country: None (occurrence: None)
  Receive Date: 20100629
  Receipt Date: 20100616
  Transmission Date: 20101027
  Serious: Yes (Life-Threatening, Hospitalization, Other)
  Sender: FDA-Public Use
  Company Number: US-ELI_LILLY_AND_COMPANY-US201004007560

PATIENT
  Sex: Female

DRUGS (4)
  1. STRATTERA [Suspect]
     Indication: ATTENTION DEFICIT/HYPERACTIVITY DISORDER
     Dosage: 1 D/F, UNK
     Route: 065
     Dates: start: 20040101
  2. STRATTERA [Suspect]
     Dosage: 1200 MG, OTHER
  3. TYLENOL (CAPLET) [Concomitant]
  4. SINGULAIR [Concomitant]

REACTIONS (5)
  - INTENTIONAL OVERDOSE [None]
  - LOSS OF CONSCIOUSNESS [None]
  - SEDATION [None]
  - SUICIDE ATTEMPT [None]
  - VOMITING [None]
